FAERS Safety Report 20830086 (Version 1)
Quarter: 2022Q2

REPORT INFORMATION
  Report Type: Spontaneous
  Country: CO (occurrence: CO)
  Receive Date: 20220514
  Receipt Date: 20220514
  Transmission Date: 20220721
  Serious: Yes (Other)
  Sender: FDA-Public Use
  Company Number: CO-AMGEN-COLSP2022080277

PATIENT
  Age: 54 Year
  Sex: Female
  Weight: 38 kg

DRUGS (4)
  1. MVASI [Suspect]
     Active Substance: BEVACIZUMAB-AWWB
     Indication: Colon cancer
     Dosage: BEVACIZUMAB 100MG/4ML, 190 MILLIGRAM, Q2WK
     Route: 042
     Dates: start: 20211108, end: 20220503
  2. LEUCOVORIN CALCIUM [Concomitant]
     Active Substance: LEUCOVORIN CALCIUM
     Indication: Colon cancer
     Dosage: 496 MILLIGRAM, Q2WK
     Route: 065
     Dates: start: 20211108, end: 20220503
  3. FLUOROURACIL [Concomitant]
     Active Substance: FLUOROURACIL
     Indication: Colon cancer
     Dosage: 2976 MILLIGRAM, Q2WK
     Route: 065
     Dates: start: 20211108, end: 20220503
  4. FLUOROURACIL [Concomitant]
     Active Substance: FLUOROURACIL
     Dosage: 496 MILLIGRAM, Q2WK
     Route: 065
     Dates: start: 20211108, end: 20220503

REACTIONS (1)
  - Myelosuppression [Recovered/Resolved]

NARRATIVE: CASE EVENT DATE: 20220419
